FAERS Safety Report 4818582-4 (Version None)
Quarter: 2005Q4

REPORT INFORMATION
  Report Type: 
  Country: None (occurrence: None)
  Receive Date: 20051101
  Receipt Date: 20051004
  Transmission Date: 20060501
  Serious: Yes (Hospitalization)
  Sender: FDA-Public Use
  Company Number: AND_0047_2005

PATIENT
  Age: 70 Year
  Sex: Female
  Weight: 63.5036 kg

DRUGS (10)
  1. ALTOPREV [Suspect]
     Dosage: 60 MG QDAY
     Dates: start: 20041101, end: 20050522
  2. NIASPAN [Suspect]
     Indication: BLOOD CHOLESTEROL INCREASED
     Dosage: DF
     Dates: start: 20050429
  3. CALCIUM GLUCONATE [Concomitant]
  4. ASPIRIN [Concomitant]
  5. ALTACE [Concomitant]
  6. PEPCID AC [Concomitant]
  7. ZANTAC [Concomitant]
  8. VITAMIN [Concomitant]
  9. PREMARIN [Concomitant]
  10. MOTRIN [Concomitant]

REACTIONS (12)
  - BLOOD PRESSURE DIASTOLIC DECREASED [None]
  - BLOOD PRESSURE SYSTOLIC INCREASED [None]
  - BUNDLE BRANCH BLOCK LEFT [None]
  - CARBON DIOXIDE DECREASED [None]
  - CHOLELITHIASIS [None]
  - DRUG INEFFECTIVE [None]
  - HAEMOGLOBIN URINE PRESENT [None]
  - HEPATITIS ACUTE [None]
  - LACRIMATION INCREASED [None]
  - LIPASE INCREASED [None]
  - RED BLOOD CELLS URINE POSITIVE [None]
  - RHABDOMYOLYSIS [None]
